FAERS Safety Report 18942625 (Version 1)
Quarter: 2021Q1

REPORT INFORMATION
  Report Type: Spontaneous
  Country: US (occurrence: US)
  Receive Date: 20210225
  Receipt Date: 20210225
  Transmission Date: 20210420
  Serious: No
  Sender: FDA-Public Use
  Company Number: US-ELI_LILLY_AND_COMPANY-US202102008074

PATIENT
  Sex: Female

DRUGS (7)
  1. HUMALOG [Suspect]
     Active Substance: INSULIN LISPRO
     Indication: DIABETES MELLITUS
     Dosage: 10 U, BID (MORNING AND AFTERNOON)
     Route: 065
  2. HUMALOG [Suspect]
     Active Substance: INSULIN LISPRO
     Dosage: 10 U, BID (MORNING AND AFTERNOON)
     Route: 065
  3. HUMALOG [Suspect]
     Active Substance: INSULIN LISPRO
     Indication: DIABETES MELLITUS
     Dosage: 10 U, BID (MORNING AND AFTERNOON)
     Route: 065
  4. HUMALOG [Suspect]
     Active Substance: INSULIN LISPRO
     Dosage: 10 U, BID (MORNING AND AFTERNOON)
     Route: 065
  5. TRULICITY [Suspect]
     Active Substance: DULAGLUTIDE
     Indication: DIABETES MELLITUS
     Dosage: 0.75 MG, UNKNOWN
     Route: 065
     Dates: start: 20210128
  6. TRULICITY [Suspect]
     Active Substance: DULAGLUTIDE
     Dosage: 0.75 MG, UNKNOWN
     Route: 065
  7. LEVEMIR [Concomitant]
     Active Substance: INSULIN DETEMIR
     Indication: DIABETES MELLITUS
     Dosage: 30 U, DAILY (BEDTIME)

REACTIONS (3)
  - Blood glucose increased [Unknown]
  - Glycosylated haemoglobin increased [Unknown]
  - Blood glucose decreased [Unknown]
